FAERS Safety Report 15020080 (Version 2)
Quarter: 2019Q1

REPORT INFORMATION
  Report Type: Report from Study
  Country: US (occurrence: US)
  Receive Date: 20180618
  Receipt Date: 20190315
  Transmission Date: 20190417
  Serious: Yes (Life-Threatening)
  Sender: FDA-Public Use
  Company Number: PHEH2018US024018

PATIENT
  Sex: Female

DRUGS (1)
  1. GLEEVEC [Suspect]
     Active Substance: IMATINIB MESYLATE
     Indication: PRODUCT USED FOR UNKNOWN INDICATION
     Dosage: 100 MG, BID (TAKE 2 BY MOUTH DAILY)
     Route: 048

REACTIONS (7)
  - Headache [Unknown]
  - Visual impairment [Unknown]
  - Pollakiuria [Unknown]
  - Cerebral disorder [Unknown]
  - Asthenia [Unknown]
  - Neoplasm progression [Unknown]
  - Memory impairment [Unknown]
